FAERS Safety Report 6920004-4 (Version None)
Quarter: 2010Q3

REPORT INFORMATION
  Report Type: 
  Country: None (occurrence: None)
  Receive Date: 20100811
  Receipt Date: 20100730
  Transmission Date: 20110219
  Serious: Yes (Other)
  Sender: FDA-Public Use
  Company Number: GB-PFIZER INC-2010096080

PATIENT
  Age: 59 Year
  Sex: Female

DRUGS (3)
  1. CISPLATIN [Suspect]
     Indication: BONE SARCOMA
     Dosage: 100 MG/M2, INFUSION OVER 24 H
     Route: 042
  2. DOXORUBICIN HCL [Suspect]
     Indication: BONE SARCOMA
     Dosage: 25 MG/M2 X 3
  3. CARBOPLATIN [Concomitant]
     Indication: BONE SARCOMA
     Dosage: 400 MG/M2, UNK

REACTIONS (2)
  - HYPONATRAEMIA [None]
  - INAPPROPRIATE ANTIDIURETIC HORMONE SECRETION [None]
